FAERS Safety Report 24426363 (Version 1)
Quarter: 2024Q4

REPORT INFORMATION
  Report Type: Spontaneous
  Country: US (occurrence: US)
  Receive Date: 20241011
  Receipt Date: 20241011
  Transmission Date: 20250114
  Serious: No
  Sender: GILEAD
  Company Number: US-GILEAD-2024-0690313

PATIENT
  Age: 81 Year
  Sex: Female
  Weight: 77.1 kg

DRUGS (25)
  1. AMBRISENTAN [Suspect]
     Active Substance: AMBRISENTAN
     Indication: Pulmonary arterial hypertension
     Dosage: 10 MG, QD
     Route: 048
     Dates: start: 2024, end: 2024
  2. AMBRISENTAN [Suspect]
     Active Substance: AMBRISENTAN
     Dosage: 5 MG, QD
     Route: 048
     Dates: start: 2024, end: 2024
  3. TYVASO DPI [Suspect]
     Active Substance: TREPROSTINIL
     Indication: Pulmonary arterial hypertension
     Dosage: 1 DOSAGE FORM, [32 ?G]
     Route: 055
     Dates: start: 20240404
  4. OPSUMIT [Suspect]
     Active Substance: MACITENTAN
     Indication: Product used for unknown indication
     Dosage: UNK
     Route: 065
     Dates: end: 20240821
  5. TADALAFIL [Concomitant]
     Active Substance: TADALAFIL
  6. PANTOPRAZOLE SODIUM [Concomitant]
     Active Substance: PANTOPRAZOLE SODIUM
  7. LOPERAMIDE [Concomitant]
     Active Substance: LOPERAMIDE
  8. VITAMIN D2 [Concomitant]
     Active Substance: ERGOCALCIFEROL
  9. YELLOW DOCK [Concomitant]
     Active Substance: RUMEX CRISPUS POLLEN
  10. POTASSIUM CHLORIDE [Concomitant]
     Active Substance: POTASSIUM CHLORIDE
  11. METOLAZONE [Concomitant]
     Active Substance: METOLAZONE
  12. BUSPIRONE HCL [Concomitant]
     Active Substance: BUSPIRONE HYDROCHLORIDE
  13. ERGOCALCIFEROL [Concomitant]
     Active Substance: ERGOCALCIFEROL
  14. GABAPENTIN [Concomitant]
     Active Substance: GABAPENTIN
  15. WARFARIN SODIUM [Concomitant]
     Active Substance: WARFARIN SODIUM
  16. MIRTAZAPINE [Concomitant]
     Active Substance: MIRTAZAPINE
  17. PREDNISONE [Concomitant]
     Active Substance: PREDNISONE
  18. TYLENOL [Concomitant]
     Active Substance: ACETAMINOPHEN
  19. LATANOPROST [Concomitant]
     Active Substance: LATANOPROST
  20. ASPIRIN [Concomitant]
     Active Substance: ASPIRIN
  21. FUROSEMIDE [Concomitant]
     Active Substance: FUROSEMIDE
  22. CARVEDILOL [Concomitant]
     Active Substance: CARVEDILOL
  23. FERROUS SULFATE [Concomitant]
     Active Substance: FERROUS SULFATE
  24. URTICA DIOICA LEAF [Concomitant]
     Active Substance: URTICA DIOICA LEAF
  25. ENBREL [Concomitant]
     Active Substance: ETANERCEPT

REACTIONS (4)
  - Oedema peripheral [Unknown]
  - Insomnia [Unknown]
  - Fluid retention [Unknown]
  - Malaise [Unknown]
